FAERS Safety Report 11449230 (Version 1)
Quarter: 2015Q3

REPORT INFORMATION
  Report Type: Report from Study
  Country: UG (occurrence: UG)
  Receive Date: 20150902
  Receipt Date: 20150902
  Transmission Date: 20151125
  Serious: Yes (Other)
  Sender: FDA-Public Use
  Company Number: UG-ABBVIE-15P-165-1454522-00

PATIENT
  Age: 35 Year
  Sex: Female

DRUGS (5)
  1. KALETRA [Suspect]
     Active Substance: LOPINAVIR\RITONAVIR
     Indication: ANTIRETROVIRAL THERAPY
     Dosage: PRIOR TO CONCEPTION; FIRST TRIMESTER EXPOSURE
     Route: 048
     Dates: start: 20070503
  2. VIRAMUNE [Suspect]
     Active Substance: NEVIRAPINE
     Indication: PRODUCT USED FOR UNKNOWN INDICATION
     Route: 048
     Dates: start: 20080804
  3. VIDEX [Suspect]
     Active Substance: DIDANOSINE
     Indication: ANTIRETROVIRAL THERAPY
     Dosage: PRIOR TO CONCEPTION; FIRST TRIMESTER EXPOSURE
     Route: 048
     Dates: start: 20070503
  4. SUSTIVA [Suspect]
     Active Substance: EFAVIRENZ
     Indication: ANTIRETROVIRAL THERAPY
     Dosage: PRIOR TO CONCEPTION; FIRST TRIMESTER EXPOSURE
     Route: 048
     Dates: start: 20070503, end: 20080721
  5. VIRAMUNE [Suspect]
     Active Substance: NEVIRAPINE
     Route: 048
     Dates: start: 20080721, end: 20080804

REACTIONS (2)
  - Exposure during pregnancy [Unknown]
  - Abortion induced [Unknown]
